FAERS Safety Report 4885117-X (Version None)
Quarter: 2006Q1

REPORT INFORMATION
  Report Type: 
  Country: None (occurrence: None)
  Receive Date: 20060117
  Receipt Date: 20060106
  Transmission Date: 20060701
  Serious: Yes (Other)
  Sender: FDA-Public Use
  Company Number: 2006004438

PATIENT
  Sex: Female
  Weight: 54.4316 kg

DRUGS (3)
  1. NATURAL CITRUS LISTERINE (MENTHOL, METHYL SALICYLATE, EUCALYPTOL, THYM [Suspect]
     Indication: PERIODONTAL DISEASE
     Dosage: DILUTED TABLESPOON 2X DAILY; ORAL
     Route: 048
     Dates: end: 20060105
  2. COLESTIPOL HYDROCHLORIDE [Concomitant]
  3. NATEGLINIDE [Concomitant]

REACTIONS (2)
  - BREAST CANCER FEMALE [None]
  - GINGIVITIS [None]
